FAERS Safety Report 6014806-9 (Version None)
Quarter: 2008Q4

REPORT INFORMATION
  Report Type: 
  Country: None (occurrence: None)
  Receive Date: 20081219
  Receipt Date: 20081218
  Transmission Date: 20090506
  Serious: Yes (Hospitalization)
  Sender: FDA-Public Use
  Company Number: US-GILEAD-2008-0018863

PATIENT
  Sex: Female
  Weight: 43.13 kg

DRUGS (6)
  1. LETAIRIS [Suspect]
     Indication: PULMONARY ARTERIAL HYPERTENSION
     Route: 048
     Dates: start: 20081011, end: 20081021
  2. METOPROLOL TARTRATE [Concomitant]
  3. MICARDIS [Concomitant]
  4. FOSAMAX [Concomitant]
  5. RESTASIS [Concomitant]
  6. ASPIRIN [Concomitant]

REACTIONS (2)
  - DYSPNOEA [None]
  - UNEVALUABLE EVENT [None]
